FAERS Safety Report 11215515 (Version 1)
Quarter: 2015Q2

REPORT INFORMATION
  Report Type: Spontaneous
  Country: US (occurrence: US)
  Receive Date: 20150624
  Receipt Date: 20150624
  Transmission Date: 20150821
  Serious: Yes (Other)
  Sender: FDA-Public Use
  Company Number: US-SA-2015SA089849

PATIENT
  Sex: Female

DRUGS (2)
  1. TYSABRI [Concomitant]
     Active Substance: NATALIZUMAB
  2. AUBAGIO [Suspect]
     Active Substance: TERIFLUNOMIDE
     Route: 065

REACTIONS (1)
  - Anaphylactic shock [Unknown]
